FAERS Safety Report 14354161 (Version 1)
Quarter: 2018Q1

REPORT INFORMATION
  Report Type: Spontaneous
  Country: FR (occurrence: FR)
  Receive Date: 20180105
  Receipt Date: 20180105
  Transmission Date: 20180509
  Serious: Yes (Hospitalization)
  Sender: FDA-Public Use
  Company Number: FR-SUN PHARMACEUTICAL INDUSTRIES LTD-2017RR-159063

PATIENT
  Age: 17 Year
  Sex: Female

DRUGS (4)
  1. CELESTENE [Suspect]
     Active Substance: BETAMETHASONE
     Indication: INFECTION
     Dosage: ()
     Route: 065
     Dates: start: 20171104, end: 20171112
  2. ESOMEPRAZOLE [Suspect]
     Active Substance: ESOMEPRAZOLE
     Indication: PROPHYLAXIS
     Dosage: ()
     Route: 065
     Dates: start: 20171104, end: 20171112
  3. ATARAX [Suspect]
     Active Substance: HYDROXYZINE HYDROCHLORIDE
     Indication: ANXIETY
     Dosage: ()
     Route: 065
     Dates: start: 20171104, end: 20171114
  4. FUCIDINE (FUSIDATE SODIUM) [Suspect]
     Active Substance: FUSIDATE SODIUM
     Indication: INFECTION
     Route: 048
     Dates: start: 20171104, end: 20171105

REACTIONS (1)
  - Rash maculo-papular [Recovered/Resolved]

NARRATIVE: CASE EVENT DATE: 20171112
